FAERS Safety Report 4904028-4 (Version None)
Quarter: 2006Q1

REPORT INFORMATION
  Report Type: 
  Country: None (occurrence: None)
  Receive Date: 20060208
  Receipt Date: 20031218
  Transmission Date: 20060701
  Serious: No
  Sender: FDA-Public Use
  Company Number: US-GLAXOSMITHKLINE-A0492955A

PATIENT
  Sex: Female
  Weight: 74.3 kg

DRUGS (3)
  1. PAXIL [Suspect]
     Indication: DRUG USE FOR UNKNOWN INDICATION
     Route: 048
  2. FERROUS SULFATE TAB [Concomitant]
  3. TRIPHASIL (UNSPECIFIED) [Concomitant]

REACTIONS (1)
  - DRUG WITHDRAWAL SYNDROME [None]
